FAERS Safety Report 19394587 (Version 8)
Quarter: 2022Q4

REPORT INFORMATION
  Report Type: Spontaneous
  Country: US (occurrence: US)
  Receive Date: 20210609
  Receipt Date: 20221020
  Transmission Date: 20230112
  Serious: No
  Sender: FDA-Public Use
  Company Number: US-PFIZER INC-2021614907

PATIENT
  Age: 66 Year
  Sex: Female
  Weight: 71.67 kg

DRUGS (1)
  1. XELJANZ [Suspect]
     Active Substance: TOFACITINIB CITRATE
     Indication: Rheumatoid arthritis
     Dosage: 5 MG, DAILY
     Route: 048
     Dates: start: 2020, end: 202105

REACTIONS (15)
  - Drug ineffective [Unknown]
  - Therapeutic product effect incomplete [Unknown]
  - Herpes zoster [Unknown]
  - Eye irritation [Unknown]
  - Lymph node pain [Unknown]
  - Visual impairment [Unknown]
  - Insomnia [Unknown]
  - Dry eye [Unknown]
  - Back pain [Unknown]
  - Illness [Unknown]
  - Malaise [Unknown]
  - Diarrhoea [Unknown]
  - Pain [Unknown]
  - Eye pain [Unknown]
  - Abnormal behaviour [Unknown]
